FAERS Safety Report 9339164 (Version 1)
Quarter: 2013Q2

REPORT INFORMATION
  Report Type: Spontaneous
  Country: BR (occurrence: BR)
  Receive Date: 20130610
  Receipt Date: 20130610
  Transmission Date: 20140414
  Serious: Yes (Other)
  Sender: FDA-Public Use
  Company Number: BR-AMGEN-BRASP2012027333

PATIENT
  Age: 57 Year
  Sex: Female
  Weight: 89 kg

DRUGS (14)
  1. ENBREL [Suspect]
     Indication: RHEUMATOID ARTHRITIS
     Dosage: 50 MG, WEEKLY
     Route: 058
     Dates: start: 201204
  2. HYDROCHLOROTHIAZIDE [Concomitant]
     Indication: HYPERTENSION
     Dosage: 50 MG, 1X/DAY
  3. AAS [Concomitant]
     Dosage: UNK UNK, QD
  4. CEBRALAT [Concomitant]
     Indication: ARTHROPATHY
     Dosage: 100 MG, 1X/DAY
  5. CARVEDILOL [Concomitant]
     Indication: HYPERTENSION
     Dosage: 12.5 MG, 2X/DAY
  6. RIVOTRIL [Concomitant]
     Indication: DEPRESSION
     Dosage: 2 MG, 1X/DAY
  7. CYMBALTA [Concomitant]
     Indication: DEPRESSION
     Dosage: 30 MG, 1X/DAY
  8. SIMVASTATIN [Concomitant]
     Indication: BLOOD CHOLESTEROL ABNORMAL
     Dosage: 20 MG, 1X/DAY
  9. PRELONE [Concomitant]
     Indication: ARTHRITIS
     Dosage: 10 MG, 1X/DAY
  10. INDAPRIL [Concomitant]
     Dosage: UNK
  11. ARAVA [Concomitant]
     Indication: ARTHRITIS
     Dosage: UNK
  12. METICORTEN [Concomitant]
     Dosage: UNK
  13. ENALAPRIL [Concomitant]
     Dosage: UNK
  14. DIAZEPAM [Concomitant]
     Dosage: UNK

REACTIONS (5)
  - Fall [Unknown]
  - Spinal fracture [Unknown]
  - Injection site pruritus [Unknown]
  - Injection site swelling [Not Recovered/Not Resolved]
  - Injection site erythema [Not Recovered/Not Resolved]
